FAERS Safety Report 9153863 (Version 2)
Quarter: 2014Q2

REPORT INFORMATION
  Report Type: Spontaneous
  Country: US (occurrence: US)
  Receive Date: 20130311
  Receipt Date: 20140514
  Transmission Date: 20141212
  Serious: No
  Sender: FDA-Public Use
  Company Number: US-009507513-1303USA003198

PATIENT
  Age: 21 Year
  Sex: Female
  Weight: 50.79 kg

DRUGS (1)
  1. IMPLANON [Suspect]
     Indication: CONTRACEPTION
     Dosage: 3  YEARS, LEFT ARM
     Route: 059
     Dates: start: 20130214

REACTIONS (9)
  - Erythema [Unknown]
  - Kidney enlargement [Unknown]
  - Metrorrhagia [Unknown]
  - Implant site pain [Recovering/Resolving]
  - Back pain [Recovering/Resolving]
  - Breast pain [Recovering/Resolving]
  - Arthralgia [Recovering/Resolving]
  - Mood swings [Recovering/Resolving]
  - Weight increased [Unknown]
